FAERS Safety Report 8465713-3 (Version None)
Quarter: 2012Q2

REPORT INFORMATION
  Report Type: 
  Country: None (occurrence: None)
  Receive Date: 20120626
  Receipt Date: 20120611
  Transmission Date: 20120825
  Serious: No
  Sender: FDA-Public Use
  Company Number: US-ASTRAZENECA-2012SE29371

PATIENT
  Sex: Female
  Weight: 56.7 kg

DRUGS (10)
  1. FOLIC ACID [Concomitant]
  2. CLONAZEPAM [Concomitant]
  3. MAGNESIUM SULFATE [Concomitant]
  4. TOPROL-XL [Suspect]
     Indication: BLOOD PRESSURE
     Route: 048
  5. OXCARBAZEPINE [Concomitant]
  6. CALCIUM [Concomitant]
  7. ERGOCALCIFEROL [Concomitant]
  8. LANSOPRAZOLE [Concomitant]
  9. HUMIRA [Suspect]
     Dosage: 40MG/.8 ML
     Route: 065
     Dates: start: 20070501
  10. DULOXETINE HYDROCHLORIDE [Concomitant]

REACTIONS (3)
  - ALOPECIA [None]
  - DRUG INEFFECTIVE [None]
  - BLOOD PRESSURE INCREASED [None]
